FAERS Safety Report 4347416-X (Version None)
Quarter: 2004Q2

REPORT INFORMATION
  Report Type: 
  Country: None (occurrence: None)
  Receive Date: 20040422
  Receipt Date: 20040413
  Transmission Date: 20050107
  Serious: Yes (Other)
  Sender: FDA-Public Use
  Company Number: 2004025587

PATIENT
  Age: 72 Year
  Sex: Male

DRUGS (1)
  1. ATARAX [Suspect]
     Indication: ILL-DEFINED DISORDER
     Dosage: 25 ONCE, INTRAMUSCULAR
     Route: 030
     Dates: start: 20040411, end: 20040411

REACTIONS (3)
  - DYSPNOEA [None]
  - HYPOGLYCAEMIA [None]
  - LOSS OF CONSCIOUSNESS [None]
